FAERS Safety Report 21813926 (Version 1)
Quarter: 2023Q1

REPORT INFORMATION
  Report Type: Other
  Country: None (occurrence: ES)
  Receive Date: 20230104
  Receipt Date: 20230104
  Transmission Date: 20230418
  Serious: Yes (Hospitalization)
  Sender: FDA-Public Use
  Company Number: ES-OrBion Pharmaceuticals Private Limited-2136389

PATIENT
  Age: 54 Year
  Sex: Male

DRUGS (4)
  1. OLANZAPINE [Suspect]
     Active Substance: OLANZAPINE
     Indication: Anxiety
     Route: 065
  2. OLANZAPINE [Suspect]
     Active Substance: OLANZAPINE
     Indication: Agoraphobia
  3. OLANZAPINE [Suspect]
     Active Substance: OLANZAPINE
     Indication: Somatic dysfunction
  4. UNSPECIFIED INGREDIENT [Suspect]
     Active Substance: UNSPECIFIED INGREDIENT
     Route: 065

REACTIONS (2)
  - Obsessive-compulsive personality disorder [Recovered/Resolved]
  - Histrionic personality disorder [Recovered/Resolved]
